FAERS Safety Report 13087564 (Version 1)
Quarter: 2017Q1

REPORT INFORMATION
  Report Type: Spontaneous
  Country: FR (occurrence: FR)
  Receive Date: 20170105
  Receipt Date: 20170105
  Transmission Date: 20170428
  Serious: Yes (Life-Threatening, Other)
  Sender: FDA-Public Use
  Company Number: FR-ELI_LILLY_AND_COMPANY-FR201612009813

PATIENT
  Age: 59 Year
  Sex: Female

DRUGS (4)
  1. AVASTIN [Concomitant]
     Active Substance: BEVACIZUMAB
     Indication: ADENOCARCINOMA
     Dosage: UNK, CYCLICAL
     Route: 042
  2. CARBOPLATINE [Suspect]
     Active Substance: CARBOPLATIN
     Indication: ADENOCARCINOMA
     Dosage: UNK, CYCLICAL
     Route: 042
  3. ALIMTA [Suspect]
     Active Substance: PEMETREXED DISODIUM
     Indication: ADENOCARCINOMA
     Dosage: UNK, CYCLICAL
     Route: 042
  4. CISPLATINE [Concomitant]
     Active Substance: CISPLATIN
     Indication: ADENOCARCINOMA
     Dosage: UNK, CYCLICAL
     Route: 042

REACTIONS (5)
  - Pyrexia [Recovering/Resolving]
  - Off label use [Unknown]
  - Purpura [Recovering/Resolving]
  - Pancytopenia [Recovering/Resolving]
  - Klebsiella infection [Unknown]

NARRATIVE: CASE EVENT DATE: 20161118
